FAERS Safety Report 7909311-6 (Version None)
Quarter: 2011Q4

REPORT INFORMATION
  Report Type: 
  Country: None (occurrence: None)
  Receive Date: 20111111
  Receipt Date: 20111108
  Transmission Date: 20120403
  Serious: Yes (Other)
  Sender: FDA-Public Use
  Company Number: US-PFIZER INC-2011132543

PATIENT
  Sex: Female

DRUGS (14)
  1. CHANTIX [Suspect]
     Indication: SMOKING CESSATION THERAPY
     Dosage: 2 STARTER PACKS, UNK
     Dates: start: 20070327, end: 20070501
  2. CHANTIX [Suspect]
     Dosage: 1 CONTINUING MONTH PACK, UNK
     Dates: start: 20081129, end: 20081201
  3. PROMETHAZINE W/ CODEINE [Concomitant]
     Indication: COUGH
     Dosage: UNK
     Dates: start: 20060101, end: 20100101
  4. CHANTIX [Suspect]
     Dosage: 1 CONTINUING MONTH PACK, UNK
     Dates: start: 20071018, end: 20071101
  5. NORCO [Concomitant]
     Indication: PAIN
     Dosage: UNK
     Dates: start: 20040101
  6. TRIAMCINOLONE ACETONIDE [Concomitant]
     Indication: DERMATITIS
     Dosage: UNK
     Route: 061
     Dates: start: 20040101, end: 20080101
  7. NEXIUM [Concomitant]
     Indication: GASTROOESOPHAGEAL REFLUX DISEASE
     Dosage: UNK
     Dates: start: 20050101
  8. LYRICA [Concomitant]
     Indication: FIBROMYALGIA
     Dosage: UNK
     Dates: start: 20060101, end: 20080101
  9. ATIVAN [Concomitant]
     Indication: INSOMNIA
  10. ZITHROMAX [Concomitant]
     Indication: INFECTION
     Dosage: UNK
     Dates: start: 20060101, end: 20100101
  11. VICODIN [Concomitant]
     Indication: PAIN
     Dosage: UNK
     Dates: start: 20040101
  12. PROMETHAZINE [Concomitant]
     Indication: GASTROOESOPHAGEAL REFLUX DISEASE
     Dosage: UNK
     Dates: start: 20040101, end: 20090101
  13. SOMA [Concomitant]
     Indication: MUSCLE SPASMS
     Dosage: UNK
     Dates: start: 20050101
  14. ATIVAN [Concomitant]
     Indication: ANXIETY
     Dosage: UNK
     Dates: start: 20040101, end: 20080101

REACTIONS (4)
  - BIPOLAR DISORDER [None]
  - DEPRESSION [None]
  - INSOMNIA [None]
  - ANXIETY [None]
